FAERS Safety Report 24291623 (Version 1)
Quarter: 2024Q3

REPORT INFORMATION
  Report Type: Spontaneous
  Country: US (occurrence: None)
  Receive Date: 20240906
  Receipt Date: 20240906
  Transmission Date: 20241017
  Serious: No
  Sender: DOMPE FARMACEUTICI
  Company Number: US-FARMAPROD-202308-202309-2844

PATIENT
  Sex: Male
  Weight: 66.22 kg

DRUGS (28)
  1. OXERVATE [Suspect]
     Active Substance: CENEGERMIN-BKBJ
     Indication: Neurotrophic keratopathy
     Route: 047
     Dates: start: 20230808
  2. OXERVATE [Suspect]
     Active Substance: CENEGERMIN-BKBJ
     Indication: Hypoaesthesia eye
  3. METOPROLOL TARTRATE [Concomitant]
     Active Substance: METOPROLOL TARTRATE
  4. VALACYCLOVIR [Concomitant]
     Active Substance: VALACYCLOVIR HYDROCHLORIDE
  5. ASPIRIN [Concomitant]
     Active Substance: ASPIRIN
  6. VITAMIN D3 [Concomitant]
     Active Substance: CHOLECALCIFEROL
  7. GLIPIZIDE [Concomitant]
     Active Substance: GLIPIZIDE
  8. CYCLOSPORINE [Concomitant]
     Active Substance: CYCLOSPORINE
  9. PANTOPRAZOLE SODIUM [Concomitant]
     Active Substance: PANTOPRAZOLE SODIUM
  10. ACETAMINOPHEN [Concomitant]
     Active Substance: ACETAMINOPHEN
  11. ISOSORBIDE MONONITRATE [Concomitant]
     Active Substance: ISOSORBIDE MONONITRATE
     Dosage: EXTENDED RELEASE.
  12. LATANOPROST [Concomitant]
     Active Substance: LATANOPROST
  13. REFRESH CLASSIC [Concomitant]
     Active Substance: POLYVINYL ALCOHOL\POVIDONE
     Dosage: 1.4 %-0.6%
  14. EZETIMIBE [Concomitant]
     Active Substance: EZETIMIBE
  15. RANOLAZINE [Concomitant]
     Active Substance: RANOLAZINE
     Dosage: 12 HOURS.
  16. CLOPIDOGREL [Concomitant]
     Active Substance: CLOPIDOGREL BISULFATE
  17. METFORMIN HYDROCHLORIDE [Concomitant]
     Active Substance: METFORMIN HYDROCHLORIDE
  18. METOPROLOL SUCCINATE [Concomitant]
     Active Substance: METOPROLOL SUCCINATE
     Dosage: 24 HOURS.
  19. ATORVASTATIN CALCIUM [Concomitant]
     Active Substance: ATORVASTATIN CALCIUM
  20. MOXIFLOXACIN [Concomitant]
     Active Substance: MOXIFLOXACIN
  21. NITROGLYCERIN [Concomitant]
     Active Substance: NITROGLYCERIN
  22. TIMOLOL MALEATE [Concomitant]
     Active Substance: TIMOLOL MALEATE
  23. GABAPENTIN [Concomitant]
     Active Substance: GABAPENTIN
  24. HYDROMORPHONE HCL [Concomitant]
     Active Substance: HYDROMORPHONE HYDROCHLORIDE
  25. FUROSEMIDE [Concomitant]
     Active Substance: FUROSEMIDE
  26. FERROUS SULFATE [Concomitant]
     Active Substance: FERROUS SULFATE
     Dosage: 325(65) MG
  27. SENOKOT [Concomitant]
     Active Substance: SENNOSIDES
  28. POLYETHYLENE GLYCOL 3350 [Concomitant]
     Active Substance: POLYETHYLENE GLYCOL 3350

REACTIONS (1)
  - Urinary tract infection [Unknown]
